FAERS Safety Report 23321730 (Version 3)
Quarter: 2025Q1

REPORT INFORMATION
  Report Type: Spontaneous
  Country: BG (occurrence: BG)
  Receive Date: 20231220
  Receipt Date: 20250108
  Transmission Date: 20250409
  Serious: Yes (Hospitalization, Other)
  Sender: SANDOZ
  Company Number: BG-ROCHE-3059873

PATIENT
  Age: 56 Year
  Sex: Female
  Weight: 78 kg

DRUGS (88)
  1. ATEZOLIZUMAB [Suspect]
     Active Substance: ATEZOLIZUMAB
     Indication: Non-small cell lung cancer metastatic
     Dosage: 1200 MG, Q3W (MOST RECENT DATE OF ADMINISTRATION PRIOR TO SAE: 16 FEB 2022)
     Route: 042
     Dates: start: 20211214
  2. BEVACIZUMAB [Suspect]
     Active Substance: BEVACIZUMAB
     Indication: Non-small cell lung cancer metastatic
     Route: 065
     Dates: start: 20211214
  3. CARBOPLATIN [Suspect]
     Active Substance: CARBOPLATIN
     Indication: Non-small cell lung cancer metastatic
     Route: 065
     Dates: start: 20211214
  4. PACLITAXEL [Suspect]
     Active Substance: PACLITAXEL
     Indication: Non-small cell lung cancer metastatic
     Route: 065
     Dates: start: 20211214
  5. ANAFTIN [Concomitant]
     Indication: Product used for unknown indication
     Route: 065
     Dates: start: 20211220, end: 20220204
  6. ANAFTIN [Concomitant]
     Route: 065
     Dates: start: 20211220, end: 20220204
  7. ANAFTIN [Concomitant]
     Route: 065
     Dates: start: 20211220, end: 20220204
  8. ANAFTIN [Concomitant]
     Route: 065
     Dates: start: 20211220, end: 20220204
  9. ANAFTIN [Concomitant]
     Route: 065
     Dates: start: 20211220, end: 20220204
  10. ANAFTIN [Concomitant]
     Route: 065
     Dates: start: 20211220, end: 20220204
  11. ANAFTIN [Concomitant]
     Route: 065
     Dates: start: 20211220, end: 20220204
  12. ANAFTIN [Concomitant]
     Route: 065
     Dates: start: 20211220, end: 20220204
  13. ASPIRIN [Concomitant]
     Active Substance: ASPIRIN
     Indication: Product used for unknown indication
     Route: 065
  14. ATEZOLIZUMAB [Concomitant]
     Active Substance: ATEZOLIZUMAB
     Indication: Product used for unknown indication
     Dosage: 1200 MG, TIW
     Route: 042
     Dates: start: 20211214
  15. ATEZOLIZUMAB [Concomitant]
     Active Substance: ATEZOLIZUMAB
     Indication: Non-small cell lung cancer metastatic
  16. AVANOR [Concomitant]
     Indication: Product used for unknown indication
     Route: 065
     Dates: start: 20220927
  17. AVANOR [Concomitant]
     Route: 065
     Dates: start: 20220927
  18. BROMHEXINE [Concomitant]
     Active Substance: BROMHEXINE
     Indication: Product used for unknown indication
     Route: 065
     Dates: start: 20220322, end: 20220324
  19. BROMHEXINE [Concomitant]
     Active Substance: BROMHEXINE
     Route: 065
     Dates: start: 20220322, end: 20220324
  20. Broncholytin [Concomitant]
     Indication: Cough
     Route: 065
     Dates: start: 20220616
  21. Broncholytin [Concomitant]
     Route: 065
     Dates: start: 20220616
  22. CLONIDINE HYDROCHLORIDE [Concomitant]
     Active Substance: CLONIDINE HYDROCHLORIDE
     Dosage: QD
     Route: 065
     Dates: start: 20220216, end: 20220216
  23. CLONIDINE HYDROCHLORIDE [Concomitant]
     Active Substance: CLONIDINE HYDROCHLORIDE
     Dosage: QD
     Route: 065
     Dates: start: 20230706, end: 20230706
  24. CLONIDINE HYDROCHLORIDE [Concomitant]
     Active Substance: CLONIDINE HYDROCHLORIDE
     Indication: Product used for unknown indication
     Dosage: UNK, QD
     Route: 065
     Dates: start: 20220216, end: 20220216
  25. CIPROFLOXACIN [Concomitant]
     Active Substance: CIPROFLOXACIN
     Dosage: QD
     Route: 065
     Dates: start: 20220927, end: 20221003
  26. CIPROFLOXACIN [Concomitant]
     Active Substance: CIPROFLOXACIN
     Indication: Prophylaxis
     Route: 065
     Dates: start: 20220927, end: 20221003
  27. CLOPIDOGREL [Concomitant]
     Active Substance: CLOPIDOGREL BISULFATE
     Indication: Product used for unknown indication
     Route: 065
  28. CLOPIGAMMA [Concomitant]
     Indication: Product used for unknown indication
     Route: 065
  29. CLOPIGAMMA [Concomitant]
     Indication: Product used for unknown indication
     Route: 065
  30. BISOPROLOL FUMARATE [Concomitant]
     Active Substance: BISOPROLOL FUMARATE
     Dosage: QD
     Route: 065
     Dates: start: 20230131
  31. BISOPROLOL FUMARATE [Concomitant]
     Active Substance: BISOPROLOL FUMARATE
     Indication: Product used for unknown indication
     Dosage: UNK, QD
     Route: 065
  32. BISOPROLOL FUMARATE [Concomitant]
     Active Substance: BISOPROLOL FUMARATE
     Route: 065
     Dates: start: 20230131
  33. BISOPROLOL FUMARATE [Concomitant]
     Active Substance: BISOPROLOL FUMARATE
     Route: 065
     Dates: start: 20230201
  34. BISOPROLOL FUMARATE [Concomitant]
     Active Substance: BISOPROLOL FUMARATE
     Route: 065
     Dates: start: 20230201
  35. DEXAMETHASONE [Concomitant]
     Active Substance: DEXAMETHASONE
     Indication: Prophylaxis
     Dosage: UNK, QD
     Route: 065
     Dates: start: 20220322, end: 20220322
  36. DEXAMETHASONE [Concomitant]
     Active Substance: DEXAMETHASONE
     Dosage: UNK, QD
     Route: 065
     Dates: start: 20220414, end: 20220414
  37. Dexofen [Concomitant]
     Route: 065
     Dates: start: 20230302
  38. Dexofen [Concomitant]
     Indication: Adverse event
     Route: 065
     Dates: start: 20220115, end: 20220205
  39. Enterol [Concomitant]
     Indication: Prophylaxis
     Route: 065
     Dates: start: 20220927, end: 20221003
  40. EZEN [Concomitant]
     Dosage: QD
     Route: 065
     Dates: start: 20220927
  41. EZEN [Concomitant]
     Indication: Bone pain
     Dosage: UNK, QD
     Route: 065
     Dates: start: 20220927
  42. GENTAMICIN [Concomitant]
     Active Substance: GENTAMICIN
     Dosage: QD
     Route: 065
     Dates: start: 20220414, end: 20220416
  43. GENTAMICIN [Concomitant]
     Active Substance: GENTAMICIN
     Indication: Prophylaxis
     Dosage: UNK, QD
     Route: 065
     Dates: start: 20220414, end: 20220416
  44. Geroxynal [Concomitant]
     Indication: Adverse event
     Route: 065
     Dates: start: 20230209, end: 20230301
  45. Geroxynal [Concomitant]
     Route: 065
     Dates: start: 20230209, end: 20230301
  46. LOPERAMIDE [Concomitant]
     Active Substance: LOPERAMIDE
     Indication: Product used for unknown indication
     Route: 065
     Dates: start: 20220414, end: 20220416
  47. METHYLPREDNISOLONE [Concomitant]
     Active Substance: METHYLPREDNISOLONE
     Indication: Product used for unknown indication
     Route: 065
     Dates: start: 20220322, end: 20220324
  48. METRONIDAZOLE [Concomitant]
     Active Substance: METRONIDAZOLE
     Indication: Prophylaxis
     Route: 065
     Dates: start: 20220414, end: 20220416
  49. METRONIDAZOLE [Concomitant]
     Active Substance: METRONIDAZOLE
     Route: 065
     Dates: start: 20220414, end: 20220416
  50. MOXONIDINE [Concomitant]
     Active Substance: MOXONIDINE
     Dosage: QD
     Route: 065
     Dates: start: 20230201
  51. MOXONIDINE [Concomitant]
     Active Substance: MOXONIDINE
     Indication: Product used for unknown indication
     Dosage: UNK, QD
     Route: 065
     Dates: start: 20230201
  52. PANTOPRAZOLE SODIUM [Concomitant]
     Active Substance: PANTOPRAZOLE SODIUM
     Dosage: QD
     Route: 065
     Dates: start: 20220927
  53. PANTOPRAZOLE SODIUM [Concomitant]
     Active Substance: PANTOPRAZOLE SODIUM
     Indication: Prophylaxis
     Dosage: UNK, QD
     Route: 065
     Dates: start: 20220927
  54. FAMOTIDINE [Concomitant]
     Active Substance: FAMOTIDINE
     Indication: Prophylaxis
     Route: 065
     Dates: start: 20220414, end: 20220416
  55. FAMOTIDINE [Concomitant]
     Active Substance: FAMOTIDINE
     Route: 065
     Dates: start: 20220414, end: 20220416
  56. DEXTROSE [Concomitant]
     Active Substance: DEXTROSE MONOHYDRATE
     Dosage: QD
     Route: 065
     Dates: start: 20220322, end: 20220324
  57. DEXTROSE [Concomitant]
     Active Substance: DEXTROSE MONOHYDRATE
     Dosage: QD
     Route: 065
     Dates: start: 20220322, end: 20220324
  58. DEXTROSE [Concomitant]
     Active Substance: DEXTROSE MONOHYDRATE
     Dosage: QD
     Route: 065
     Dates: start: 20220322, end: 20220324
  59. DEXTROSE [Concomitant]
     Active Substance: DEXTROSE MONOHYDRATE
     Dosage: QD
     Route: 065
     Dates: start: 20220322, end: 20220324
  60. DEXTROSE [Concomitant]
     Active Substance: DEXTROSE MONOHYDRATE
     Dosage: QD
     Route: 065
     Dates: start: 20220322, end: 20220324
  61. DEXTROSE [Concomitant]
     Active Substance: DEXTROSE MONOHYDRATE
     Dosage: QD
     Route: 065
     Dates: start: 20220322, end: 20220324
  62. DEXTROSE [Concomitant]
     Active Substance: DEXTROSE MONOHYDRATE
     Dosage: QD
     Route: 065
     Dates: start: 20220322, end: 20220324
  63. DEXTROSE [Concomitant]
     Active Substance: DEXTROSE MONOHYDRATE
     Dosage: QD
     Route: 065
     Dates: start: 20220322, end: 20220324
  64. DEXTROSE [Concomitant]
     Active Substance: DEXTROSE MONOHYDRATE
     Dosage: QD
     Route: 065
     Dates: start: 20220322, end: 20220324
  65. DEXTROSE [Concomitant]
     Active Substance: DEXTROSE MONOHYDRATE
     Dosage: QD
     Route: 065
     Dates: start: 20220414, end: 20220416
  66. DEXTROSE [Concomitant]
     Active Substance: DEXTROSE MONOHYDRATE
     Dosage: QD
     Route: 065
     Dates: start: 20220414, end: 20220416
  67. DEXTROSE [Concomitant]
     Active Substance: DEXTROSE MONOHYDRATE
     Dosage: QD
     Route: 065
     Dates: start: 20220414, end: 20220416
  68. DEXTROSE [Concomitant]
     Active Substance: DEXTROSE MONOHYDRATE
     Dosage: QD
     Route: 065
     Dates: start: 20220414, end: 20220416
  69. DEXTROSE [Concomitant]
     Active Substance: DEXTROSE MONOHYDRATE
     Dosage: QD
     Route: 065
     Dates: start: 20220414, end: 20220416
  70. DEXTROSE [Concomitant]
     Active Substance: DEXTROSE MONOHYDRATE
     Dosage: QD
     Route: 065
     Dates: start: 20220414, end: 20220416
  71. DEXTROSE [Concomitant]
     Active Substance: DEXTROSE MONOHYDRATE
     Dosage: QD
     Route: 065
     Dates: start: 20220414, end: 20220416
  72. DEXTROSE [Concomitant]
     Active Substance: DEXTROSE MONOHYDRATE
     Dosage: QD
     Route: 065
     Dates: start: 20220414, end: 20220416
  73. DEXTROSE [Concomitant]
     Active Substance: DEXTROSE MONOHYDRATE
     Dosage: QD
     Route: 065
     Dates: start: 20220414, end: 20220416
  74. DEXTROSE [Concomitant]
     Active Substance: DEXTROSE MONOHYDRATE
     Dosage: QD
     Route: 065
     Dates: start: 20220414, end: 20220416
  75. DEXTROSE [Concomitant]
     Active Substance: DEXTROSE MONOHYDRATE
     Dosage: UNK
     Route: 065
     Dates: start: 20220322, end: 20220324
  76. DEXTROSE [Concomitant]
     Active Substance: DEXTROSE MONOHYDRATE
     Indication: Prophylaxis
     Dosage: UNK, QD
     Route: 065
     Dates: start: 20220322, end: 20220324
  77. DEXTROSE [Concomitant]
     Active Substance: DEXTROSE MONOHYDRATE
     Dosage: UNK, QD
     Route: 065
     Dates: start: 20220414, end: 20220416
  78. SODIUM CHLORIDE [Concomitant]
     Active Substance: SODIUM CHLORIDE
     Indication: Product used for unknown indication
     Dosage: UNK, QD
     Route: 065
     Dates: start: 20220322, end: 20220324
  79. SOPHAFYLLIN [Concomitant]
     Indication: Product used for unknown indication
     Dosage: UNK, QD
     Route: 065
     Dates: start: 20220322, end: 20220324
  80. TECENTRIQ [Concomitant]
     Active Substance: ATEZOLIZUMAB
     Indication: Product used for unknown indication
     Route: 065
  81. TERCEF [Concomitant]
     Indication: Prophylaxis
     Route: 065
     Dates: start: 20220414, end: 20220416
  82. TERCEF [Concomitant]
     Route: 065
     Dates: start: 20220414, end: 20220416
  83. ASCORBIC ACID [Concomitant]
     Active Substance: ASCORBIC ACID
     Indication: Product used for unknown indication
     Dosage: UNK UNK, QD
     Route: 065
     Dates: start: 20220322, end: 20220324
  84. ASCORBIC ACID [Concomitant]
     Active Substance: ASCORBIC ACID
     Route: 065
     Dates: start: 20220414, end: 20220416
  85. VITAMIN C [Concomitant]
     Active Substance: ASCORBIC ACID
     Indication: Product used for unknown indication
     Route: 065
     Dates: start: 20220322, end: 20220324
  86. VITAMIN C [Concomitant]
     Active Substance: ASCORBIC ACID
     Route: 065
     Dates: start: 20220414, end: 20220416
  87. Vivace [Concomitant]
     Indication: Product used for unknown indication
     Dosage: UNK UNK, BID
     Route: 065
     Dates: start: 20220927
  88. Vivace [Concomitant]
     Route: 065
     Dates: start: 20220927

REACTIONS (14)
  - Dyspnoea [Recovered/Resolved]
  - Neuropathy peripheral [Recovered/Resolved]
  - Aphthous ulcer [Recovered/Resolved]
  - Dizziness [Recovered/Resolved]
  - Headache [Recovered/Resolved]
  - Hypertension [Recovered/Resolved]
  - Cough [Not Recovered/Not Resolved]
  - Alopecia [Not Recovered/Not Resolved]
  - Chest pain [Recovered/Resolved]
  - Oropharyngeal pain [Recovered/Resolved]
  - Bone pain [Recovered/Resolved]
  - Dysphonia [Recovered/Resolved]
  - Dysphagia [Recovered/Resolved]
  - Folliculitis [Recovered/Resolved]

NARRATIVE: CASE EVENT DATE: 20211220
